FAERS Safety Report 4778655-1 (Version None)
Quarter: 2005Q3

REPORT INFORMATION
  Report Type: 
  Country: None (occurrence: None)
  Receive Date: 20050926
  Receipt Date: 20050914
  Transmission Date: 20060218
  Serious: Yes (Death, Other)
  Sender: FDA-Public Use
  Company Number: HCM-0119

PATIENT
  Age: 63 Year
  Sex: Male

DRUGS (7)
  1. HYCAMTIN [Suspect]
     Dosage: 1.2MG PER DAY
     Dates: start: 20040421, end: 20040426
  2. AMRUBICIN HYDROCHLORIDE [Suspect]
     Dosage: 50MG PER DAY
     Route: 042
     Dates: start: 20040421, end: 20040423
  3. GRANISETRON  HCL [Concomitant]
     Dosage: 1AMP PER DAY
     Dates: start: 20040421, end: 20040423
  4. CEFOTIAM HYDROCHLORIDE [Concomitant]
     Dosage: 2G PER DAY
     Dates: start: 20040426, end: 20040523
  5. LENOGRASTIM [Concomitant]
     Dosage: 100MG PER DAY
     Route: 042
     Dates: start: 20040429, end: 20040508
  6. VERAPAMIL [Concomitant]
     Dosage: 45MG PER DAY
     Route: 048
     Dates: start: 20040323, end: 20040526
  7. DESLANOSIDE [Concomitant]

REACTIONS (8)
  - BLOOD CALCIUM DECREASED [None]
  - BLOOD LACTATE DEHYDROGENASE INCREASED [None]
  - BLOOD SODIUM DECREASED [None]
  - BLOOD UREA INCREASED [None]
  - HAEMOGLOBIN DECREASED [None]
  - PLATELET COUNT DECREASED [None]
  - RED BLOOD CELL COUNT DECREASED [None]
  - WHITE BLOOD CELL COUNT DECREASED [None]
